FAERS Safety Report 21258848 (Version 1)
Quarter: 2022Q3

REPORT INFORMATION
  Report Type: Spontaneous
  Country: NO (occurrence: NO)
  Receive Date: 20220826
  Receipt Date: 20220826
  Transmission Date: 20221027
  Serious: Yes (Hospitalization, Other)
  Sender: FDA-Public Use
  Company Number: None

PATIENT
  Age: 66 Year
  Sex: Male

DRUGS (3)
  1. SULFASALAZINE [Suspect]
     Active Substance: SULFASALAZINE
     Indication: Arthritis enteropathic
     Dosage: 1 G, 2X/DAY (EVERY 12 HOURS)
     Dates: start: 2012, end: 2019
  2. HYRIMOZ [Suspect]
     Active Substance: ADALIMUMAB-ADAZ
     Indication: Arthritis
     Dosage: EVERY 2 WEEKS
     Dates: start: 2014, end: 2022
  3. REMICADE [Suspect]
     Active Substance: INFLIXIMAB
     Indication: Arthritis
     Dosage: EVERY 6 TO 8 WEEKS
     Dates: start: 2012, end: 2014

REACTIONS (1)
  - Malignant melanoma [Recovering/Resolving]

NARRATIVE: CASE EVENT DATE: 20211201
